FAERS Safety Report 15884150 (Version 2)
Quarter: 2019Q1

REPORT INFORMATION
  Report Type: Report from Study
  Country: CA (occurrence: CA)
  Receive Date: 20190129
  Receipt Date: 20190204
  Transmission Date: 20190417
  Serious: Yes (Death, Other)
  Sender: FDA-Public Use
  Company Number: CA-MYLANLABS-2019M1007041

PATIENT
  Sex: Male

DRUGS (1)
  1. EPIPEN [Suspect]
     Active Substance: EPINEPHRINE
     Indication: FOOD ALLERGY
     Route: 065

REACTIONS (7)
  - Device failure [Fatal]
  - Diarrhoea [Unknown]
  - Condition aggravated [Unknown]
  - Wrong technique in product usage process [Fatal]
  - Circumstance or information capable of leading to medication error [Unknown]
  - Anaphylactic reaction [Fatal]
  - Device issue [Fatal]
